FAERS Safety Report 24091333 (Version 1)
Quarter: 2024Q3

REPORT INFORMATION
  Report Type: Spontaneous
  Country: US (occurrence: None)
  Receive Date: 20240714
  Receipt Date: 20240714
  Transmission Date: 20241017
  Serious: Yes (Other)
  Sender: Public
  Company Number: None

PATIENT
  Age: 26 Year
  Sex: Female
  Weight: 51.75 kg

DRUGS (1)
  1. MICONAZOLE 3 [Suspect]
     Active Substance: MICONAZOLE NITRATE
     Indication: Fungal infection
     Dosage: OTHER QUANTITY : 1 APPLICATOR;?FREQUENCY : AT BEDTIME;?
     Route: 067
     Dates: start: 20240714, end: 20240714

REACTIONS (3)
  - Vulvovaginal pruritus [None]
  - Vulvovaginal burning sensation [None]
  - Vulvovaginal pruritus [None]

NARRATIVE: CASE EVENT DATE: 20240714
